FAERS Safety Report 7681025-X (Version None)
Quarter: 2011Q3

REPORT INFORMATION
  Report Type: 
  Country: None (occurrence: None)
  Receive Date: 20110812
  Receipt Date: 20110803
  Transmission Date: 20111222
  Serious: Yes (Other)
  Sender: FDA-Public Use
  Company Number: JP-JNJFOC-20110609231

PATIENT
  Age: 69 Year
  Sex: Male

DRUGS (21)
  1. TAMSULOSIN HYDROCHLORIDE [Concomitant]
     Route: 048
     Dates: start: 20110615, end: 20110617
  2. CYCLOPHOSPHAMIDE [Concomitant]
     Route: 041
     Dates: start: 20110715
  3. FENTANYL [Suspect]
     Indication: CANCER PAIN
     Route: 062
     Dates: start: 20061223, end: 20081022
  4. ETODOLAC [Concomitant]
     Indication: CANCER PAIN
     Route: 048
  5. LOXOPROFEN [Concomitant]
     Indication: CANCER PAIN
     Dosage: 3 TABLET/DAY AFTER MEALS
     Route: 048
  6. LECICARBON [Concomitant]
     Indication: CONSTIPATION PROPHYLAXIS
     Dosage: 1 DF
     Route: 054
     Dates: start: 20110612
  7. RED BLOOD CELLS, LEUCOCYTE DEPLETED [Concomitant]
     Dosage: 2 DF ONCE A DAY
     Route: 041
     Dates: start: 20110715
  8. FENTANYL [Suspect]
     Route: 062
     Dates: start: 20100622, end: 20110609
  9. UNKNOWN MEDICATION [Concomitant]
     Indication: PROPHYLAXIS OF NAUSEA AND VOMITING
     Route: 065
  10. DEXAMETHASONE [Concomitant]
     Indication: MULTIPLE MYELOMA
     Dosage: 5 DF ONCE A DAY
     Route: 048
     Dates: start: 20110520, end: 20110702
  11. FENTANYL [Suspect]
     Route: 062
     Dates: start: 20081022, end: 20100615
  12. BORTEZOMIB [Suspect]
     Indication: MULTIPLE MYELOMA
     Route: 042
     Dates: start: 20100608, end: 20100611
  13. NITRAZEPAM [Concomitant]
     Indication: INSOMNIA
     Route: 048
  14. TAMSULOSIN HYDROCHLORIDE [Concomitant]
     Route: 048
     Dates: start: 20110713
  15. GRANISETRON HYDROCHLORIDE [Concomitant]
     Indication: PROPHYLAXIS OF NAUSEA AND VOMITING
     Route: 041
     Dates: start: 20110715
  16. ALENDRONATE SODIUM [Concomitant]
     Indication: CANCER PAIN
     Route: 048
  17. METHYCOBAL [Concomitant]
     Indication: MULTIPLE MYELOMA
     Dosage: AFTER MEALS
     Route: 048
  18. SULFAMETHOXAZOLE [Concomitant]
     Indication: INFECTION PROPHYLAXIS
     Dosage: 2 DF ONCE A DAY
     Route: 048
  19. BORTEZOMIB [Suspect]
     Route: 042
     Dates: start: 20100713, end: 20110712
  20. SENNOSIDE [Concomitant]
     Indication: CONSTIPATION PROPHYLAXIS
     Route: 048
  21. TELEMINSOFT [Concomitant]
     Indication: CONSTIPATION PROPHYLAXIS
     Route: 054
     Dates: start: 20110611, end: 20110611

REACTIONS (17)
  - DYSURIA [None]
  - INSOMNIA [None]
  - VOMITING [None]
  - DIZZINESS [None]
  - HERPES ZOSTER [None]
  - PYREXIA [None]
  - DYSPNOEA [None]
  - MALAISE [None]
  - MYELOPATHY [None]
  - RADIAL NERVE PALSY [None]
  - CONSTIPATION [None]
  - DIARRHOEA [None]
  - NEUROPATHY PERIPHERAL [None]
  - BACK PAIN [None]
  - SOMNOLENCE [None]
  - ABDOMINAL PAIN UPPER [None]
  - NAUSEA [None]
